FAERS Safety Report 5984806-3 (Version None)
Quarter: 2008Q4

REPORT INFORMATION
  Report Type: 
  Country: None (occurrence: None)
  Receive Date: 20081202
  Receipt Date: 20081124
  Transmission Date: 20090506
  Serious: Yes (Hospitalization)
  Sender: FDA-Public Use
  Company Number: GXKR2008GB11168

PATIENT
  Age: 39 Year
  Sex: Female

DRUGS (5)
  1. CLARITHROMYCIN [Suspect]
     Dosage: 500 MG, BID, ORAL
     Route: 048
     Dates: start: 20080606
  2. PREDNISOLONE [Suspect]
     Indication: BRONCHOSPASM
     Dosage: 5 MG, 6QD, ORAL
     Route: 048
     Dates: start: 20080529, end: 20080615
  3. PREDNISOLONE [Suspect]
     Indication: LOWER RESPIRATORY TRACT INFECTION
     Dosage: 5 MG, 6QD, ORAL
     Route: 048
     Dates: start: 20080529, end: 20080615
  4. CHLORPROMAZINE [Concomitant]
  5. DIAZEPAM [Concomitant]

REACTIONS (2)
  - DISSOCIATION [None]
  - ENCEPHALITIS VIRAL [None]
